FAERS Safety Report 11437628 (Version 1)
Quarter: 2015Q3

REPORT INFORMATION
  Report Type: Spontaneous
  Country: US (occurrence: US)
  Receive Date: 20150821
  Receipt Date: 20150821
  Transmission Date: 20151125
  Serious: No
  Sender: FDA-Public Use
  Company Number: US-ELI_LILLY_AND_COMPANY-US200705007835

PATIENT
  Age: 50 Year
  Sex: Female

DRUGS (5)
  1. PLAVIX [Concomitant]
     Active Substance: CLOPIDOGREL BISULFATE
  2. NORVASC [Concomitant]
     Active Substance: AMLODIPINE BESYLATE
  3. CORGARD [Concomitant]
     Active Substance: NADOLOL
  4. PROZAC [Concomitant]
     Active Substance: FLUOXETINE HYDROCHLORIDE
     Indication: DEPRESSION
     Dosage: 40 MG, UNK
     Dates: start: 2001, end: 20070311
  5. CYMBALTA [Suspect]
     Active Substance: DULOXETINE HYDROCHLORIDE
     Indication: DEPRESSION
     Dosage: 60 MG, UNK
     Dates: start: 20070312, end: 20070528

REACTIONS (13)
  - Feeling abnormal [Unknown]
  - Hot flush [Unknown]
  - Asthenia [Unknown]
  - Feeling cold [Unknown]
  - Sleep disorder [Unknown]
  - Influenza like illness [Unknown]
  - Thirst [Unknown]
  - Abnormal sensation in eye [Unknown]
  - Migraine [Unknown]
  - Tension headache [Unknown]
  - Vision blurred [Unknown]
  - Mood swings [Unknown]
  - Abnormal dreams [Unknown]

NARRATIVE: CASE EVENT DATE: 2007
